FAERS Safety Report 13663855 (Version 1)
Quarter: 2017Q2

REPORT INFORMATION
  Report Type: Spontaneous
  Country: US (occurrence: US)
  Receive Date: 20170619
  Receipt Date: 20170619
  Transmission Date: 20170830
  Serious: No
  Sender: FDA-Public Use
  Company Number: US-TEVA-709342USA

PATIENT
  Sex: Male

DRUGS (1)
  1. TRAMADOL HYDROCHLORIDE TABLETS 50 MG [Suspect]
     Active Substance: TRAMADOL HYDROCHLORIDE

REACTIONS (2)
  - Thirst [Unknown]
  - Dehydration [Unknown]
